FAERS Safety Report 22176919 (Version 1)
Quarter: 2023Q2

REPORT INFORMATION
  Report Type: Spontaneous
  Country: US (occurrence: US)
  Receive Date: 20230405
  Receipt Date: 20230405
  Transmission Date: 20230721
  Serious: Yes (Hospitalization)
  Sender: FDA-Public Use
  Company Number: US-BIOVITRUM-2023-US-006377

PATIENT
  Age: 13 Year
  Sex: Female

DRUGS (1)
  1. KINERET [Suspect]
     Active Substance: ANAKINRA
     Indication: Relapsing fever
     Dosage: DAILY
     Route: 058
     Dates: start: 20230208

REACTIONS (4)
  - Injection site pain [Unknown]
  - Injection site rash [Unknown]
  - Intentional product misuse [Unknown]
  - Abdominal pain [Unknown]

NARRATIVE: CASE EVENT DATE: 20230208
